FAERS Safety Report 18146636 (Version 3)
Quarter: 2021Q2

REPORT INFORMATION
  Report Type: Spontaneous
  Country: US (occurrence: US)
  Receive Date: 20200813
  Receipt Date: 20210616
  Transmission Date: 20210717
  Serious: Yes (Other)
  Sender: FDA-Public Use
  Company Number: US-PFIZER INC-2018036762

PATIENT
  Age: 67 Year
  Sex: Male
  Weight: 97.52 kg

DRUGS (6)
  1. CELECOXIB. [Concomitant]
     Active Substance: CELECOXIB
  2. ACETAMINOPHEN. [Concomitant]
     Active Substance: ACETAMINOPHEN
  3. XELJANZ XR [Suspect]
     Active Substance: TOFACITINIB CITRATE
     Indication: RHEUMATOID ARTHRITIS
     Dosage: 11 MG, 1X/DAY
     Dates: start: 20171221
  4. PREDNISONE. [Concomitant]
     Active Substance: PREDNISONE
  5. TIZANIDINE. [Concomitant]
     Active Substance: TIZANIDINE
  6. HYDROCODONE [Concomitant]
     Active Substance: HYDROCODONE

REACTIONS (1)
  - Prostate infection [Unknown]
